FAERS Safety Report 8012049-0 (Version None)
Quarter: 2011Q4

REPORT INFORMATION
  Report Type: 
  Country: None (occurrence: None)
  Receive Date: 20111228
  Receipt Date: 20111219
  Transmission Date: 20120403
  Serious: Yes (Hospitalization)
  Sender: FDA-Public Use
  Company Number: NL-GLAXOSMITHKLINE-B0771790A

PATIENT
  Sex: Male
  Weight: 98 kg

DRUGS (7)
  1. AVODART [Concomitant]
     Dosage: .5MG PER DAY
     Route: 048
  2. METOPROLOL SUCCINATE [Concomitant]
     Dosage: 100MG PER DAY
     Route: 048
  3. AMLODIPINE [Concomitant]
     Dosage: 10MG PER DAY
     Route: 048
  4. IRBESARTAN [Concomitant]
     Route: 048
  5. GLIMEPIRIDE [Concomitant]
     Dosage: 4MG PER DAY
     Route: 048
  6. ZOVIRAX [Suspect]
     Indication: HERPES ZOSTER OPHTHALMIC
     Dosage: 1000MG THREE TIMES PER DAY
     Route: 042
     Dates: start: 20111201, end: 20111204
  7. TAMSULOSIN HCL [Concomitant]
     Dosage: .4MG PER DAY
     Route: 048

REACTIONS (2)
  - DEHYDRATION [None]
  - RENAL FAILURE ACUTE [None]
